FAERS Safety Report 7583017-8 (Version None)
Quarter: 2011Q2

REPORT INFORMATION
  Report Type: 
  Country: None (occurrence: None)
  Receive Date: 20110630
  Receipt Date: 20110628
  Transmission Date: 20111010
  Serious: Yes (Other)
  Sender: FDA-Public Use
  Company Number: BE-BRISTOL-MYERS SQUIBB COMPANY-15780927

PATIENT
  Age: 56 Year

DRUGS (13)
  1. METHOTREXATE [Suspect]
     Route: 030
     Dates: start: 20110114
  2. CYMBALTA [Concomitant]
  3. LORAZEPAM [Concomitant]
  4. CALCIUM CARBONATE [Concomitant]
  5. D-CURE [Concomitant]
  6. LEVOTHYROXINE SODIUM [Concomitant]
  7. LIPITOR [Concomitant]
  8. PERINDOPRIL ERBUMINE [Concomitant]
  9. OXYCODONE HCL [Concomitant]
  10. URSO FALK [Concomitant]
  11. ORENCIA [Suspect]
     Indication: RHEUMATOID ARTHRITIS
     Dosage: NO OF INF:5
     Route: 042
     Dates: start: 20101011
  12. OXYCONTIN [Concomitant]
  13. MEDROL [Concomitant]

REACTIONS (2)
  - CHRONIC HEPATITIS [None]
  - CHOLANGITIS SCLEROSING [None]
